FAERS Safety Report 12548731 (Version 1)
Quarter: 2016Q3

REPORT INFORMATION
  Report Type: Spontaneous
  Country: US (occurrence: None)
  Receive Date: 20160711
  Receipt Date: 20160711
  Transmission Date: 20161109
  Serious: Yes (Disabling)
  Sender: FDA-Public Use
  Company Number: None

PATIENT
  Age: 89 Year
  Sex: Female
  Weight: 67.13 kg

DRUGS (16)
  1. CIPRO [Suspect]
     Active Substance: CIPROFLOXACIN HYDROCHLORIDE
     Indication: URINARY TRACT INFECTION
     Dates: start: 20150715, end: 20160624
  2. TRAMADOL. [Concomitant]
     Active Substance: TRAMADOL
  3. LOSARTIN [Concomitant]
     Active Substance: LOSARTAN
  4. MELATONIN [Concomitant]
     Active Substance: MELATONIN
  5. COLOSTRUM HUMAN [Concomitant]
     Active Substance: HUMAN COLOSTRUM
  6. LEVOTHYROXINE. [Concomitant]
     Active Substance: LEVOTHYROXINE
  7. POTASSIUM [Concomitant]
     Active Substance: POTASSIUM
  8. D [Concomitant]
  9. UBLIQUINOL [Concomitant]
  10. ARICEPT [Concomitant]
     Active Substance: DONEPEZIL HYDROCHLORIDE
  11. CARBIDOPA-LEVO [Concomitant]
     Active Substance: CARBIDOPA\LEVODOPA
  12. SINIMET [Concomitant]
  13. ASPIRIN. [Concomitant]
     Active Substance: ASPIRIN
  14. MANNOSE [Concomitant]
  15. TYLENOL [Concomitant]
     Active Substance: ACETAMINOPHEN
  16. COD LIVER OIL [Concomitant]
     Active Substance: COD LIVER OIL

REACTIONS (6)
  - Asthenia [None]
  - Hyperaesthesia [None]
  - Dysstasia [None]
  - Pain [None]
  - Fatigue [None]
  - Body temperature fluctuation [None]

NARRATIVE: CASE EVENT DATE: 20160610
